FAERS Safety Report 21811490 (Version 2)
Quarter: 2024Q2

REPORT INFORMATION
  Report Type: Spontaneous
  Country: GB (occurrence: GB)
  Receive Date: 20230103
  Receipt Date: 20240614
  Transmission Date: 20240717
  Serious: Yes (Hospitalization, Other)
  Sender: FDA-Public Use
  Company Number: GB-ABBVIE-22K-405-4461997-00

PATIENT
  Age: 20 Year
  Sex: Male
  Weight: 78 kg

DRUGS (50)
  1. LIDOCAINE [Suspect]
     Active Substance: LIDOCAINE
     Indication: Adverse event
     Route: 065
  2. CYCLOPHOSPHAMIDE [Suspect]
     Active Substance: CYCLOPHOSPHAMIDE
     Indication: Refractory cancer
     Dosage: 250 MG/M2, 21D (MAXIMUM 5 DAYS EVERY 21 DAYS),
     Route: 065
     Dates: start: 20220221
  3. CYCLOPHOSPHAMIDE [Suspect]
     Active Substance: CYCLOPHOSPHAMIDE
     Indication: Refractory cancer
     Route: 065
  4. TOPOTECAN HYDROCHLORIDE [Suspect]
     Active Substance: TOPOTECAN HYDROCHLORIDE
     Indication: Refractory cancer
     Dosage: TIME INTERVAL: 0.04761905 DAYS: MAXIMUM 5 DAYS, ROUTE:INTRAVENOUS USE
     Route: 050
     Dates: start: 20220221
  5. IFOSFAMIDE [Suspect]
     Active Substance: IFOSFAMIDE
     Indication: Neoplasm
     Dosage: DURATION : 183 DAYS
     Route: 050
     Dates: start: 20170519, end: 20171118
  6. DOXORUBICIN HYDROCHLORIDE [Suspect]
     Active Substance: DOXORUBICIN HYDROCHLORIDE
     Indication: Neoplasm
     Dosage: DURATION : 111 DAYS
     Route: 065
     Dates: start: 20200430, end: 20200818
  7. MORPHINE SULFATE [Suspect]
     Active Substance: MORPHINE SULFATE
     Indication: Product used for unknown indication
     Route: 065
  8. CETIRIZINE [Suspect]
     Active Substance: CETIRIZINE HYDROCHLORIDE
     Indication: Product used for unknown indication
     Route: 065
     Dates: start: 20220301
  9. MESNA [Suspect]
     Active Substance: MESNA
     Indication: Neoplasm
     Dosage: DURATION : 187 DAYS
     Route: 065
     Dates: start: 20170515, end: 20171118
  10. MESNA [Suspect]
     Active Substance: MESNA
     Indication: Neoplasm
     Dosage: DURATION : 183 DAYS
     Route: 065
     Dates: start: 20170519, end: 20171118
  11. DOCUSATE SODIUM [Suspect]
     Active Substance: DOCUSATE SODIUM
     Indication: Product used for unknown indication
     Route: 050
     Dates: start: 20220308
  12. DOCUSATE SODIUM [Suspect]
     Active Substance: DOCUSATE SODIUM
     Indication: Product used for unknown indication
     Route: 050
     Dates: start: 20220301, end: 202203
  13. DOCUSATE SODIUM [Suspect]
     Active Substance: DOCUSATE SODIUM
     Indication: Product used for unknown indication
     Dosage: UNK
     Route: 065
     Dates: start: 20220301
  14. TOPOTECAN [Suspect]
     Active Substance: TOPOTECAN HYDROCHLORIDE
     Indication: Refractory cancer
     Dosage: 0.75 MG/M2, 21D (MAXIMUM 5 DAYS EVERY 21 DAYS);  ROUTE:INTRAVENOUS USE
     Route: 050
     Dates: start: 20220221
  15. DOCUSATE SODIUM [Suspect]
     Active Substance: DOCUSATE SODIUM
     Indication: Product used for unknown indication
     Dosage: UNK
     Route: 065
     Dates: start: 20220301, end: 202203
  16. DOCUSATE SODIUM [Suspect]
     Active Substance: DOCUSATE SODIUM
     Indication: Product used for unknown indication
     Route: 065
     Dates: start: 20220301
  17. DOCUSATE SODIUM [Suspect]
     Active Substance: DOCUSATE SODIUM
     Indication: Product used for unknown indication
     Dosage: UNK
     Route: 065
     Dates: start: 20220308
  18. VENETOCLAX [Suspect]
     Active Substance: VENETOCLAX
     Indication: Refractory cancer
     Dosage: 800 MG, QD
     Route: 065
     Dates: start: 20220218
  19. LIDOCAINE HYDROCHLORIDE [Concomitant]
     Active Substance: LIDOCAINE HYDROCHLORIDE
     Indication: Product used for unknown indication
     Dosage: UNK
  20. ACETAMINOPHEN [Concomitant]
     Active Substance: ACETAMINOPHEN
     Indication: Adverse event
     Dosage: UNK
     Dates: start: 20220308
  21. TEICOPLANIN [Concomitant]
     Active Substance: TEICOPLANIN
     Indication: Proctalgia
     Dosage: UNK
  22. TRIMETHOPRIM [Concomitant]
     Active Substance: TRIMETHOPRIM
     Indication: Product used for unknown indication
     Dosage: UNK
  23. CLONIDINE [Concomitant]
     Active Substance: CLONIDINE
     Indication: Proctalgia
     Dosage: UNK
  24. LIPEGFILGRASTIM [Concomitant]
     Active Substance: LIPEGFILGRASTIM
     Indication: Prophylaxis
     Dosage: 6 MG, 1X/DAY, DURATION : 1 DAY, 6 MG DAILY , DURATION: 1 DAYS
     Route: 050
     Dates: start: 20220227, end: 20220227
  25. POLYETHYLENE GLYCOLS [Concomitant]
     Active Substance: POLYETHYLENE GLYCOLS
     Indication: Proctalgia
     Dosage: UNKNOWN;
  26. ZINC OXIDE [Concomitant]
     Active Substance: ZINC OXIDE
     Indication: Product used for unknown indication
     Dosage: UNK
  27. COTRIMOXAZOLE [Concomitant]
     Active Substance: SULFAMETHOXAZOLE\TRIMETHOPRIM
     Indication: Pneumocystis jirovecii pneumonia
     Dosage: 960 MG, BID (MONDAY, WEDNESDAY AND FRIDAY, 2 IN 1 DAY), 1920 MG DAILY
     Dates: start: 20220218
  28. COTRIMOXAZOLE [Concomitant]
     Active Substance: SULFAMETHOXAZOLE\TRIMETHOPRIM
     Indication: Pneumocystis jirovecii pneumonia
     Dosage: DOSAGE TEXT: 960 MG, (MONDAY, WEDNESDAY AND FRIDAY), UNIT DOSE : 1920 MG, FREQUENCY TIME : 1 DAY,...
     Route: 050
     Dates: start: 20220218
  29. AMOXICILLIN\CLAVULANIC ACID [Concomitant]
     Active Substance: AMOXICILLIN\CLAVULANIC ACID
     Indication: Adverse event
     Dosage: AN UNSPECIFIED DOSE AND FREQUENCY;
     Route: 050
     Dates: start: 20220331
  30. PIPERACILLIN SODIUM\TAZOBACTAM SODIUM [Concomitant]
     Active Substance: PIPERACILLIN SODIUM\TAZOBACTAM SODIUM
     Indication: Adverse event
     Dosage: UNKNOWN
     Dates: start: 20220302
  31. ZINC SULFATE [Concomitant]
     Active Substance: ZINC SULFATE
     Indication: Haemorrhoids
     Dosage: UNKNOWN
     Dates: start: 20220304
  32. SULFAMETHOXAZOLE [Concomitant]
     Active Substance: SULFAMETHOXAZOLE
     Indication: Product used for unknown indication
     Dosage: UNK
  33. ONDANSETRON [Concomitant]
     Active Substance: ONDANSETRON
     Indication: Prophylaxis of nausea and vomiting
     Dosage: TIME INTERVAL: 0.33333333 DAYS: 24 MG, TID (8 MG, 3 IN ONE DAY), 72 MG DAILY
     Dates: start: 20220218
  34. MEROPENEM [Concomitant]
     Active Substance: MEROPENEM
     Indication: Proctalgia
     Dosage: UNK
  35. FENTANYL [Concomitant]
     Active Substance: FENTANYL\FENTANYL CITRATE
     Indication: Proctalgia
     Dosage: UNK
  36. LEVOTHYROXINE [Concomitant]
     Active Substance: LEVOTHYROXINE\LEVOTHYROXINE SODIUM
     Indication: Hypothyroidism
     Dosage: 75 MCG, QD
     Dates: start: 20200707
  37. KETAMINE [Concomitant]
     Active Substance: KETAMINE
     Indication: Proctalgia
     Dosage: UNK
  38. CETIRIZINE HYDROCHLORIDE [Suspect]
     Active Substance: CETIRIZINE HYDROCHLORIDE
     Indication: Product used for unknown indication
     Dosage: ZIRTEK ALLERGY
     Route: 050
     Dates: start: 20220301
  39. HYDROCORTISONE ACETATE\LIDOCAINE HYDROCHLORIDE [Suspect]
     Active Substance: HYDROCORTISONE ACETATE\LIDOCAINE HYDROCHLORIDE
     Dosage: UNK
     Route: 065
  40. HYDROCORTISONE ACETATE [Suspect]
     Active Substance: HYDROCORTISONE ACETATE
     Indication: Adverse event
     Route: 065
  41. MORPHINE SULFATE [Suspect]
     Active Substance: MORPHINE SULFATE
     Dosage: UNK
     Route: 065
  42. PSEUDOEPHEDRINE HYDROCHLORIDE [Suspect]
     Active Substance: PSEUDOEPHEDRINE HYDROCHLORIDE
     Dosage: 250 MILLIGRAM/SQ. METER
     Route: 065
     Dates: start: 20220301
  43. SODIUM CHLORIDE [Suspect]
     Active Substance: SODIUM CHLORIDE
     Route: 065
     Dates: start: 20220308
  44. SODIUM CHLORIDE [Suspect]
     Active Substance: SODIUM CHLORIDE
     Route: 065
     Dates: start: 20220301, end: 2022
  45. DOXORUBICIN HYDROCHLORIDE [Suspect]
     Active Substance: DOXORUBICIN HYDROCHLORIDE
     Indication: Neoplasm
     Dosage: UNK, DURATION: 111 DAYS
     Route: 065
     Dates: start: 20200430, end: 20200818
  46. CYCLOPHOSPHAMIDE [Suspect]
     Active Substance: CYCLOPHOSPHAMIDE
     Indication: Recurrent cancer
     Dosage: TIME INTERVAL: 0.04761905 DAYS: 250 MG/M2, 21D, POWDER FOR SOLUTION FOR INJECTION (MAXIMUM 5 DAYS...
     Route: 065
     Dates: start: 20220221
  47. ANUSOL NOS [Concomitant]
     Active Substance: BALSAM PERU\BENZYL BENZOATE\BISMUTH HYDROXIDE\BISMUTH SUBGALLATE\HYDROCORTISONE ACETATE\ZINC OXIDE
     Indication: Haemorrhoids
     Dates: start: 20220304
  48. INSTILLAGEL [Suspect]
     Active Substance: CHLORHEXIDINE GLUCONATE\LIDOCAINE HYDROCHLORIDE
     Indication: Product used for unknown indication
     Dosage: UNK
     Route: 065
  49. XYLOCAINE [Suspect]
     Active Substance: LIDOCAINE HYDROCHLORIDE\LIDOCAINE HYDROCHLORIDE ANHYDROUS
     Indication: Adverse event
     Dosage: UNK
     Route: 065
  50. DOXIL [Suspect]
     Active Substance: DOXORUBICIN HYDROCHLORIDE
     Indication: Neoplasm
     Dosage: DURATION : 111 DAYS
     Route: 065
     Dates: start: 20200430, end: 20200818

REACTIONS (19)
  - Malaise [Unknown]
  - Pyrexia [Unknown]
  - Proctalgia [Recovered/Resolved]
  - SARS-CoV-2 test negative [Unknown]
  - Haemorrhoids [Unknown]
  - Accident [Unknown]
  - Body temperature increased [Unknown]
  - Vomiting [Unknown]
  - Febrile neutropenia [Recovered/Resolved]
  - Back pain [Recovered/Resolved]
  - Diarrhoea [Recovering/Resolving]
  - Crohn^s disease [Recovering/Resolving]
  - Crohn^s disease [Unknown]
  - Anal inflammation [Unknown]
  - Anal inflammation [Unknown]
  - Neutropenia [Unknown]
  - Pain [Unknown]
  - Chills [Unknown]
  - Proctalgia [Recovered/Resolved]

NARRATIVE: CASE EVENT DATE: 20220301
